FAERS Safety Report 21799942 (Version 1)
Quarter: 2022Q4

REPORT INFORMATION
  Report Type: Spontaneous
  Country: SE (occurrence: None)
  Receive Date: 20221230
  Receipt Date: 20221230
  Transmission Date: 20230113
  Serious: Yes (Hospitalization)
  Sender: FDA-Public Use
  Company Number: 2022A414312

PATIENT
  Age: 16 Year
  Sex: Female

DRUGS (4)
  1. QUETIAPINE [Suspect]
     Active Substance: QUETIAPINE
     Dosage: 500.0MG UNKNOWN
     Route: 065
     Dates: start: 20211208, end: 20211208
  2. ATARAX [Suspect]
     Active Substance: HYDROXYZINE HYDROCHLORIDE
     Route: 065
     Dates: start: 20211208, end: 20211208
  3. LISDEXAMFETAMINE DIMESYLATE [Suspect]
     Active Substance: LISDEXAMFETAMINE DIMESYLATE
     Dosage: UNCLEAR, MAYBE 15 PCS A 40 MG, 600 MG ONCE/SINGLE ADMINISTRATION
     Route: 065
     Dates: start: 20211208, end: 20211208
  4. SERTRALINE [Suspect]
     Active Substance: SERTRALINE HYDROCHLORIDE
     Dosage: 2.0G UNKNOWN
     Route: 065
     Dates: start: 20211208, end: 20211208

REACTIONS (2)
  - Intentional overdose [Unknown]
  - Intentional self-injury [Unknown]

NARRATIVE: CASE EVENT DATE: 20211208
